FAERS Safety Report 6339334-2 (Version None)
Quarter: 2009Q3

REPORT INFORMATION
  Report Type: 
  Country: None (occurrence: None)
  Receive Date: 20090903
  Receipt Date: 20090826
  Transmission Date: 20100115
  Serious: Yes (Hospitalization)
  Sender: FDA-Public Use
  Company Number: B0589628A

PATIENT
  Sex: Female

DRUGS (7)
  1. LAMICTAL [Suspect]
     Indication: DEPRESSION
     Dosage: 25MG PER DAY
     Route: 048
     Dates: start: 20090721, end: 20090804
  2. WYPAX [Concomitant]
     Indication: ANXIOLYTIC THERAPY
     Dosage: 3MG PER DAY
     Route: 048
     Dates: start: 20070119
  3. GANATON [Concomitant]
     Indication: ABDOMINAL DISCOMFORT
     Dosage: 150MG PER DAY
     Route: 048
     Dates: start: 20090117
  4. BIOFERMIN [Concomitant]
     Indication: ABDOMINAL DISCOMFORT
     Route: 048
     Dates: start: 20080705
  5. GASTER [Concomitant]
     Dosage: 10MG PER DAY
     Route: 048
     Dates: start: 20080705
  6. BUSCOPAN [Concomitant]
     Dosage: 30MG PER DAY
     Route: 048
     Dates: start: 20080705
  7. LANDSEN [Concomitant]
     Indication: DEPRESSION
     Dosage: .5MG PER DAY
     Route: 048
     Dates: start: 20090721, end: 20090804

REACTIONS (14)
  - ALANINE AMINOTRANSFERASE INCREASED [None]
  - ASPARTATE AMINOTRANSFERASE INCREASED [None]
  - BLOOD CREATININE DECREASED [None]
  - BLOOD GLUCOSE INCREASED [None]
  - BLOOD IMMUNOGLOBULIN E INCREASED [None]
  - BLOOD LACTATE DEHYDROGENASE INCREASED [None]
  - ELECTROCARDIOGRAM ST SEGMENT ELEVATION [None]
  - GAMMA-GLUTAMYLTRANSFERASE INCREASED [None]
  - LYMPHOCYTE COUNT DECREASED [None]
  - MONOCYTE COUNT INCREASED [None]
  - PLATELET COUNT DECREASED [None]
  - PYREXIA [None]
  - RASH [None]
  - WHITE BLOOD CELL COUNT DECREASED [None]
